FAERS Safety Report 4585651-6 (Version None)
Quarter: 2005Q1

REPORT INFORMATION
  Report Type: 
  Country: None (occurrence: None)
  Receive Date: 20050210
  Receipt Date: 20050125
  Transmission Date: 20050727
  Serious: No
  Sender: FDA-Public Use
  Company Number: CART-10388

PATIENT
  Age: 54 Year
  Sex: Male

DRUGS (8)
  1. CARTICEL [Suspect]
     Indication: ARTHROPATHY
     Dosage: 1 NA ONCE IS
     Dates: start: 20040420, end: 20040420
  2. VICOPROFEN [Concomitant]
  3. ATENOLOL [Concomitant]
  4. METFORMIN HCL [Concomitant]
  5. PEPCIDF [Concomitant]
  6. PREVACID [Concomitant]
  7. LIPITOR [Concomitant]
  8. BENZAPRIL [Concomitant]

REACTIONS (7)
  - ARTHROPATHY [None]
  - FAILURE OF IMPLANT [None]
  - GRAFT COMPLICATION [None]
  - JOINT CREPITATION [None]
  - JOINT LOCK [None]
  - JOINT RANGE OF MOTION DECREASED [None]
  - PROCEDURAL COMPLICATION [None]
